FAERS Safety Report 7318397-1 (Version None)
Quarter: 2011Q1

REPORT INFORMATION
  Report Type: 
  Country: None (occurrence: None)
  Receive Date: 20110218
  Receipt Date: 20110218
  Transmission Date: 20110831
  Serious: No
  Sender: FDA-Public Use
  Company Number: None

PATIENT
  Sex: Male
  Weight: 75.8 kg

DRUGS (17)
  1. BEVACIZUMAB (RHUMAB VEGF) [Suspect]
     Dosage: 385 MG
     Dates: end: 20110112
  2. LEVOTHYROXINE [Concomitant]
  3. LIDOCAINE-PRILOCAINE CREAM [Concomitant]
  4. LOMOTIL [Concomitant]
  5. PANTOPRAZOLE [Concomitant]
  6. SIMETHICONE [Concomitant]
  7. LORAZEPAM [Concomitant]
  8. PROCHLORPERAZINE [Concomitant]
  9. SUCRALFATE [Concomitant]
  10. FLUOROURACIL [Suspect]
     Dosage: 4410 MG
     Dates: end: 20110112
  11. LEUCOVORIN CALCIUM [Suspect]
     Dosage: 790 MG
     Dates: end: 20110112
  12. OXYCONTIN [Concomitant]
  13. VISCOUS LIDOCAINE ORAL SOLUTION [Concomitant]
  14. ACETAMINOPHEN [Concomitant]
  15. DEXAMETHASONE [Concomitant]
  16. LIDOCAINE HYDROCHLORIDE [Concomitant]
  17. CAMPTOSAR [Suspect]
     Dosage: 295 MG
     Dates: end: 20110112

REACTIONS (4)
  - RECTAL PERFORATION [None]
  - ANAL FISSURE [None]
  - FREQUENT BOWEL MOVEMENTS [None]
  - PERIRECTAL ABSCESS [None]
